FAERS Safety Report 26175397 (Version 2)
Quarter: 2025Q4

REPORT INFORMATION
  Report Type: Spontaneous
  Country: TN (occurrence: TN)
  Receive Date: 20251218
  Receipt Date: 20251230
  Transmission Date: 20260117
  Serious: Yes (Other)
  Sender: PFIZER
  Company Number: TN-PFIZER INC-PV202500145929

PATIENT
  Age: 34 Year
  Sex: Female

DRUGS (1)
  1. SULFASALAZINE [Suspect]
     Active Substance: SULFASALAZINE
     Indication: Enterocolitis haemorrhagic
     Dosage: 1 G, 4X/DAY

REACTIONS (1)
  - Autoimmune hepatitis [Recovered/Resolved]
